FAERS Safety Report 22836898 (Version 6)
Quarter: 2024Q3

REPORT INFORMATION
  Report Type: Spontaneous
  Country: GB (occurrence: GB)
  Receive Date: 20230818
  Receipt Date: 20240713
  Transmission Date: 20241017
  Serious: Yes (Hospitalization, Other)
  Sender: ABBVIE
  Company Number: GB-MYLANLABS-2023M1078418

PATIENT
  Age: 38 Year
  Sex: Male

DRUGS (72)
  1. CITALOPRAM [Suspect]
     Active Substance: CITALOPRAM\CITALOPRAM HYDROBROMIDE
     Indication: Depressed mood
     Dosage: 20 MILLIGRAM, QD (20MG DAILY START DATE: JUL-2004)
     Route: 065
     Dates: start: 200407
  2. CITALOPRAM [Suspect]
     Active Substance: CITALOPRAM\CITALOPRAM HYDROBROMIDE
     Indication: Depressed mood
     Dosage: 30 MILLIGRAM, QD (30MG DAILY START DATE: JUL-2014)
     Route: 065
     Dates: start: 201407, end: 201503
  3. CITALOPRAM [Suspect]
     Active Substance: CITALOPRAM\CITALOPRAM HYDROBROMIDE
     Indication: Depressed mood
     Dosage: 20 MILLIGRAM, QD (20MG DAILY START DATE: NOV-2003)
     Route: 065
     Dates: start: 200311
  4. CITALOPRAM [Suspect]
     Active Substance: CITALOPRAM\CITALOPRAM HYDROBROMIDE
     Indication: Depressed mood
     Dosage: 20 MILLIGRAM, QD (20MG DAILY START DATE: JAN-2003)
     Route: 065
     Dates: start: 200301, end: 2003
  5. CITALOPRAM [Suspect]
     Active Substance: CITALOPRAM\CITALOPRAM HYDROBROMIDE
     Indication: Depressed mood
     Dosage: 20 MILLIGRAM, QD (20MG DAILY START DATE: MAY-2005)
     Route: 065
     Dates: start: 200505
  6. CITALOPRAM [Suspect]
     Active Substance: CITALOPRAM\CITALOPRAM HYDROBROMIDE
     Indication: Depressed mood
     Dosage: UNK (START DATE: 2013)
     Route: 065
     Dates: start: 2013
  7. CITALOPRAM [Suspect]
     Active Substance: CITALOPRAM\CITALOPRAM HYDROBROMIDE
     Indication: Depressed mood
     Dosage: 20 MILLIGRAM, QD (20MG DAILY START DATE: NOV-2004)
     Route: 065
     Dates: start: 200411
  8. CITALOPRAM [Suspect]
     Active Substance: CITALOPRAM\CITALOPRAM HYDROBROMIDE
     Indication: Depressed mood
     Dosage: OVERDOSE: UNKNOWN DOSE
     Route: 065
     Dates: start: 2003, end: 2003
  9. PROCYCLIDINE [Concomitant]
     Active Substance: PROCYCLIDINE
     Indication: Product used for unknown indication
     Dosage: 2.5 MILLIGRAM (MAX 10MG IN 24 HOURS)
     Route: 065
  10. ENSURE COMPACT [Concomitant]
     Indication: Product used for unknown indication
  11. HALOPERIDOL [Suspect]
     Active Substance: HALOPERIDOL
     Indication: Product used for unknown indication
     Route: 065
  12. AMISULPRIDE [Suspect]
     Active Substance: AMISULPRIDE
     Indication: Affective disorder
     Dosage: UNKNOWN DOSE IN THE MORNING, 100MG IN THE EVENING
     Route: 065
     Dates: start: 200311
  13. AMISULPRIDE [Suspect]
     Active Substance: AMISULPRIDE
     Indication: Affective disorder
     Dosage: 100MG IN THE MORNING, 400MG AT NIGHT START DATE: JUL-2016
     Route: 065
     Dates: start: 201607
  14. AMISULPRIDE [Suspect]
     Active Substance: AMISULPRIDE
     Indication: Affective disorder
     Dosage: 200 MILLIGRAM, QD
     Route: 065
     Dates: start: 200301
  15. AMISULPRIDE [Suspect]
     Active Substance: AMISULPRIDE
     Indication: Affective disorder
     Dosage: 100 MILLIGRAM, QD
     Route: 065
     Dates: start: 200407
  16. AMISULPRIDE [Suspect]
     Active Substance: AMISULPRIDE
     Indication: Affective disorder
     Dosage: 50 MILLIGRAM, BID
     Route: 065
     Dates: start: 2013
  17. AMISULPRIDE [Suspect]
     Active Substance: AMISULPRIDE
     Indication: Affective disorder
     Dosage: UNK (START DATE: JAN-2022; ;
     Route: 065
     Dates: start: 202201
  18. AMISULPRIDE [Suspect]
     Active Substance: AMISULPRIDE
     Indication: Affective disorder
     Route: 065
     Dates: start: 200411
  19. AMISULPRIDE [Suspect]
     Active Substance: AMISULPRIDE
     Indication: Affective disorder
     Dosage: 200MG TWICE DAILY, 600MG AT NIGHT
     Route: 065
     Dates: start: 201605
  20. AMISULPRIDE [Suspect]
     Active Substance: AMISULPRIDE
     Indication: Affective disorder
     Dosage: 200 MILLIGRAM, BID
     Route: 065
     Dates: start: 201509
  21. AMISULPRIDE [Suspect]
     Active Substance: AMISULPRIDE
     Indication: Affective disorder
     Dosage: 100 MILLIGRAM, QD
     Route: 065
     Dates: start: 200307
  22. AMISULPRIDE [Suspect]
     Active Substance: AMISULPRIDE
     Indication: Affective disorder
     Dosage: 200MG TWICE DAILY, 600MG AT NIGHT START DATE: MAY-2016; ;
     Route: 065
     Dates: start: 201605
  23. AMISULPRIDE [Suspect]
     Active Substance: AMISULPRIDE
     Indication: Affective disorder
     Dosage: 50 MILLIGRAM, BID (50MG TWICE DAILY START DATE: JUL-2014)
     Route: 065
     Dates: start: 201407, end: 201503
  24. AMISULPRIDE [Suspect]
     Active Substance: AMISULPRIDE
     Indication: Affective disorder
     Dosage: 100MG IN THE MORNING, 400MG AT NIGHT START DATE: JUL-2016; ;
     Route: 065
     Dates: start: 201607
  25. AMISULPRIDE [Suspect]
     Active Substance: AMISULPRIDE
     Indication: Affective disorder
     Dosage: 200MG IN THE MORNING, 600MG AT NIGHT START DATE: JUN-2016
     Route: 065
     Dates: start: 201606
  26. AMISULPRIDE [Suspect]
     Active Substance: AMISULPRIDE
     Indication: Affective disorder
     Dosage: 50 MILLIGRAM, QD
     Route: 065
     Dates: start: 200505
  27. CLOZARIL [Suspect]
     Active Substance: CLOZAPINE
     Indication: Schizophrenia
     Dosage: 200MG IN THE MORNING, 300MG AT NIGHT START DATE: -NOV-2016)
     Route: 065
     Dates: start: 201611
  28. CLOZARIL [Suspect]
     Active Substance: CLOZAPINE
     Indication: Schizophrenia
     Dosage: 100MG IN THE MORNING, 300MG AT NIGHT START DATE: -JUL-2014
     Route: 065
     Dates: start: 201407, end: 201503
  29. CLOZARIL [Suspect]
     Active Substance: CLOZAPINE
     Indication: Schizophrenia
     Dosage: 100MG IN THE MORNING, 400MG IN THE EVENING START DATE: JUL-2003?LAST ADMIN DATE WAS 2023
     Route: 048
     Dates: start: 200307
  30. CLOZARIL [Suspect]
     Active Substance: CLOZAPINE
     Indication: Schizophrenia
     Dosage: 100MG IN THE MORNING, 400MG IN THE EVENING START DATE: -MAY-2005?LAST ADMIN DATE WAS 2005
     Route: 048
     Dates: start: 200505
  31. CLOZARIL [Suspect]
     Active Substance: CLOZAPINE
     Indication: Schizophrenia
     Dosage: UNK (START DATE: 20-JUL-2023)
     Route: 048
     Dates: start: 20230720
  32. CLOZARIL [Suspect]
     Active Substance: CLOZAPINE
     Indication: Schizophrenia
     Dosage: 400 MILLIGRAM, QD (400MG AT NIGHT)  START DATE: -JAN-2017
     Route: 065
     Dates: start: 201701
  33. CLOZARIL [Suspect]
     Active Substance: CLOZAPINE
     Indication: Schizophrenia
     Dosage: 325 MILLIGRAM, QD (325MG IN THE EVENING START DATE: -JUN-2008)
     Route: 065
     Dates: start: 200806
  34. CLOZARIL [Suspect]
     Active Substance: CLOZAPINE
     Indication: Schizophrenia
     Dosage: 500 MILLIGRAM, QD (500MG DAILY START DATE: -2013)
     Route: 065
     Dates: start: 2013
  35. CLOZARIL [Suspect]
     Active Substance: CLOZAPINE
     Indication: Schizophrenia
     Dosage: 350 MILLIGRAM, QD (350MG IN THE EVENING START DATE: -MAY-2006)
     Route: 065
     Dates: start: 200605
  36. CLOZARIL [Suspect]
     Active Substance: CLOZAPINE
     Indication: Schizophrenia
     Dosage: 275 MILLIGRAM, QD (275MG IN THE EVENING START DATE: -NOV-2008)
     Route: 048
     Dates: start: 200811
  37. CLOZARIL [Suspect]
     Active Substance: CLOZAPINE
     Indication: Schizophrenia
     Dosage: 100MG IN THE MORNING, 400MG IN THE EVENING START DATE: NOV-2003
     Route: 048
     Dates: start: 200311
  38. CLOZARIL [Suspect]
     Active Substance: CLOZAPINE
     Indication: Schizophrenia
     Dosage: 225 MILLIGRAM, QD (225MG IN THE EVENING START DATE: -AUG-2010)
     Route: 048
     Dates: start: 201008
  39. CLOZARIL [Suspect]
     Active Substance: CLOZAPINE
     Indication: Schizophrenia
     Dosage: 250 MILLIGRAM, QD (250MG IN THE EVENING START DATE: -SEP-2009)
     Route: 048
     Dates: start: 200909
  40. CLOZARIL [Suspect]
     Active Substance: CLOZAPINE
     Indication: Schizophrenia
     Dosage: 200MG IN THE MORNING, 300MG AT NIGHT  START DATE: -JUL-2016
     Route: 065
     Dates: start: 201607
  41. CLOZARIL [Suspect]
     Active Substance: CLOZAPINE
     Indication: Schizophrenia
     Dosage: 100MG IN THE MORNING, 400MG IN THE EVENING  START DATE: NOV-2005
     Route: 048
     Dates: start: 200511
  42. CLOZARIL [Suspect]
     Active Substance: CLOZAPINE
     Indication: Schizophrenia
     Dosage: 200MG IN THE MORNING, 300MG AT NIGHT START DATE:-MAY-2016?LAST ADMIN DATE WAS 2016
     Route: 048
     Dates: start: 201605
  43. CLOZARIL [Suspect]
     Active Substance: CLOZAPINE
     Indication: Schizophrenia
     Dosage: 375 MILLIGRAM, QD (375MG IN THE EVENING  START DATE:-MAY-2006
     Route: 065
     Dates: start: 200605
  44. CLOZARIL [Suspect]
     Active Substance: CLOZAPINE
     Indication: Schizophrenia
     Dosage: 225 MILLIGRAM, BID (225MG TWICE DAILY START DATE: -OCT-2019)
     Route: 065
     Dates: start: 201910, end: 20220112
  45. CLOZARIL [Suspect]
     Active Substance: CLOZAPINE
     Indication: Schizophrenia
     Dosage: 200 MILLIGRAM, QD (200MG IN THE EVENING START DATE: -DEC-2010)
     Route: 065
     Dates: start: 201012, end: 201201
  46. CLOZARIL [Suspect]
     Active Substance: CLOZAPINE
     Indication: Schizophrenia
     Dosage: 100MG IN THE MORNING, 400MG IN THE EVENING START DATE:-JUL-2004?LAST ADMIN DATE WAS 2004
     Route: 048
     Dates: start: 200407
  47. CLOZARIL [Suspect]
     Active Substance: CLOZAPINE
     Indication: Schizophrenia
     Dosage: 100MG IN THE MORNING, 400MG IN THE EVENING START DATE: -JAN-2003?LAST ADMIN DATE WAS 2003
     Route: 048
     Dates: start: 200301
  48. CLOZARIL [Suspect]
     Active Substance: CLOZAPINE
     Indication: Schizophrenia
     Dosage: 200MG IN THE MORNING, 300MG AT NIGHT START DATE: -JUN-2016
     Route: 048
     Dates: start: 201606
  49. CLOZARIL [Suspect]
     Active Substance: CLOZAPINE
     Indication: Schizophrenia
     Dosage: 50MG IN THE MORNING, 250MG IN THE EVENING START DATE: -SEP-2015
     Route: 065
     Dates: start: 201509
  50. CLOZARIL [Suspect]
     Active Substance: CLOZAPINE
     Indication: Schizophrenia
     Dosage: 100MG IN THE MORNING, 400MG IN THE EVENING START DATE: -NOV-2004
     Route: 048
     Dates: start: 200411
  51. VITAMIN B [Concomitant]
     Active Substance: VITAMIN B
     Indication: Product used for unknown indication
     Dosage: 1 DOSAGE FORM, BID (ONE TABLET TWICE DAILY)
     Route: 065
  52. FLUPENTIXOL DECANOATE [Suspect]
     Active Substance: FLUPENTIXOL DECANOATE
     Indication: Product used for unknown indication
     Dosage: 200 MILLIGRAM, QW (200MG WEEKLY START DATE: DEC-2022)
     Route: 065
     Dates: start: 202212, end: 202303
  53. FLUPENTIXOL DECANOATE [Suspect]
     Active Substance: FLUPENTIXOL DECANOATE
     Indication: Product used for unknown indication
     Dosage: 400 MILLIGRAM, QW (400MG WEEKLY START DATE: AUG-2022)?LAST ADMIN DATE WAS 2022
     Route: 065
     Dates: start: 202208
  54. FLUPENTIXOL DECANOATE [Suspect]
     Active Substance: FLUPENTIXOL DECANOATE
     Indication: Product used for unknown indication
     Dosage: 200 MILLIGRAM, QW (200MG WEEKLY START DATE:MAR-2023)
     Route: 065
     Dates: start: 202303, end: 202305
  55. LACTULOSE [Concomitant]
     Active Substance: LACTULOSE
     Indication: Product used for unknown indication
     Dosage: 15 MILLILITER (MAX THREE TIMES DAILY)
     Route: 065
  56. ACETAMINOPHEN [Concomitant]
     Active Substance: ACETAMINOPHEN
     Indication: Product used for unknown indication
     Dosage: 1 GRAM (MAX 4G IN 24 HOURS)
     Route: 065
  57. FOLIC ACID\IRON\MINERALS\VITAMINS [Concomitant]
     Active Substance: FOLIC ACID\IRON\MINERALS\VITAMINS
     Indication: Product used for unknown indication
     Dosage: 1 DOSAGE FORM, QD (ONE TABLET ONCE DAILY)
     Route: 065
  58. FLEXITOL HEEL [Concomitant]
     Indication: Product used for unknown indication
     Dosage: TWICE DAILY
     Route: 065
  59. THIAMINE [Concomitant]
     Active Substance: THIAMINE
     Indication: Product used for unknown indication
     Dosage: 100 MILLIGRAM, BID (100MG TWICE DAILY)
     Route: 065
  60. RISPERIDONE [Suspect]
     Active Substance: RISPERIDONE
     Indication: Product used for unknown indication
     Route: 065
     Dates: start: 200210
  61. RISPERIDONE [Suspect]
     Active Substance: RISPERIDONE
     Indication: Product used for unknown indication
     Dosage: UNK (START DATE: FEB-2013);
     Route: 065
     Dates: start: 201302
  62. LORAZEPAM [Suspect]
     Active Substance: LORAZEPAM
     Indication: Product used for unknown indication
     Dosage: 1 MILLIGRAM, BID ( (PO/IM) 1-2MG (MAX 4MG IN 24 HOURS START DATE: SEP-2015)
     Route: 065
     Dates: start: 201509
  63. CHOLECALCIFEROL [Concomitant]
     Active Substance: CHOLECALCIFEROL
     Indication: Product used for unknown indication
     Dosage: 800 INTERNATIONAL UNIT, QD (800 UNITS ONCE DAILY)
     Route: 065
  64. FERROUS SULFATE [Suspect]
     Active Substance: FERROUS SULFATE
     Indication: Product used for unknown indication
     Route: 065
  65. PROMETHAZINE [Concomitant]
     Active Substance: PROMETHAZINE HYDROCHLORIDE
     Indication: Product used for unknown indication
     Dosage: 25 MILLIGRAM (MAX 100MG IN 25 HOURS)
     Route: 065
  66. VALPROATE SODIUM [Suspect]
     Active Substance: VALPROATE SODIUM
     Indication: Product used for unknown indication
     Dosage: 750 MILLIGRAM, BID (750MG TWICE DAILY START DATE: MAY-2016)
     Route: 065
     Dates: start: 201605
  67. VALPROATE SODIUM [Suspect]
     Active Substance: VALPROATE SODIUM
     Indication: Product used for unknown indication
     Dosage: 750 MILLIGRAM, BID (750MG TWICE DAILY START DATE: JUN-2016)
     Route: 065
     Dates: start: 201606
  68. VALPROATE SODIUM [Suspect]
     Active Substance: VALPROATE SODIUM
     Indication: Product used for unknown indication
     Dosage: 500 MILLIGRAM, BID (500MG TWICE DAILY START DATE:JUL-2016)
     Route: 065
     Dates: start: 201607
  69. VALPROATE SODIUM [Suspect]
     Active Substance: VALPROATE SODIUM
     Indication: Product used for unknown indication
     Dosage: 750 MILLIGRAM, BID (750MG TWICE DAILY START DATE:MAR-2023)
     Route: 065
     Dates: start: 202303, end: 202305
  70. CARIPRAZINE [Suspect]
     Active Substance: CARIPRAZINE
     Indication: Product used for unknown indication
     Dosage: 3 MILLIGRAM, QD (3MG DAILY START DATE: AUG-2022)?LAST ADMIN DATE WAS 2022
     Route: 048
     Dates: start: 202208
  71. CARIPRAZINE [Suspect]
     Active Substance: CARIPRAZINE
     Indication: Product used for unknown indication
     Dosage: 6 MILLIGRAM, QD (6MG DAILY START DATE: DEC-2022)
     Route: 048
     Dates: start: 202212, end: 202303
  72. CARIPRAZINE [Suspect]
     Active Substance: CARIPRAZINE
     Indication: Product used for unknown indication
     Dosage: 6 MILLIGRAM, QD (6MG DAILY START DATE: MAR-2023)
     Route: 048
     Dates: start: 202303, end: 202305

REACTIONS (30)
  - Suicidal ideation [Unknown]
  - Hallucination, auditory [Not Recovered/Not Resolved]
  - Eating disorder [Unknown]
  - Depressed mood [Unknown]
  - Mental impairment [Unknown]
  - COVID-19 [Unknown]
  - Orthostatic hypotension [Unknown]
  - Slow speech [Unknown]
  - Dystonia [Unknown]
  - Neglect of personal appearance [Unknown]
  - Cardiac arrest [Unknown]
  - Psoriasis [Unknown]
  - Vitamin D decreased [Unknown]
  - Lymphocyte count decreased [Unknown]
  - Delusion of grandeur [Unknown]
  - Acne [Unknown]
  - Neutrophil count decreased [Not Recovered/Not Resolved]
  - Blood prolactin increased [Unknown]
  - Strabismus [Unknown]
  - Weight decreased [Unknown]
  - Aggression [Unknown]
  - Withdrawal syndrome [Unknown]
  - Accidental exposure to product [Unknown]
  - Thinking abnormal [Not Recovered/Not Resolved]
  - Insomnia [Unknown]
  - Red blood cell sedimentation rate decreased [Unknown]
  - Overdose [Unknown]
  - Pneumonia aspiration [Unknown]
  - Delusion [Not Recovered/Not Resolved]
  - Sedation [Unknown]

NARRATIVE: CASE EVENT DATE: 20030101
